FAERS Safety Report 5474498-4 (Version None)
Quarter: 2007Q3

REPORT INFORMATION
  Report Type: 
  Country: None (occurrence: None)
  Receive Date: 20070928
  Receipt Date: 20070928
  Transmission Date: 20080115
  Serious: Yes (Hospitalization)
  Sender: FDA-Public Use
  Company Number: None

PATIENT
  Sex: Female
  Weight: 70.8 kg

DRUGS (12)
  1. TEMOZOLOMIDE [Suspect]
     Dosage: 135 MG
  2. ASPIRIN [Concomitant]
  3. COLACE [Concomitant]
  4. DECADRON [Concomitant]
  5. DIGOXIN [Concomitant]
  6. DUONEBS [Concomitant]
  7. LASIX [Concomitant]
  8. LEVAQUIN [Concomitant]
  9. LIPITOR [Concomitant]
  10. LOVENOX [Concomitant]
  11. METOPROLOL TARTRATE [Concomitant]
  12. MUCOMYST [Concomitant]

REACTIONS (5)
  - HALLUCINATION [None]
  - METABOLIC ENCEPHALOPATHY [None]
  - ORAL INTAKE REDUCED [None]
  - SOMNOLENCE [None]
  - VISUAL DISTURBANCE [None]
